FAERS Safety Report 4917988-2 (Version None)
Quarter: 2006Q1

REPORT INFORMATION
  Report Type: 
  Country: None (occurrence: None)
  Receive Date: 20060221
  Receipt Date: 20051019
  Transmission Date: 20060701
  Serious: Yes (Hospitalization, Disabling)
  Sender: FDA-Public Use
  Company Number: US-MERCK-0510USA08251

PATIENT
  Age: 62 Year
  Sex: Male
  Weight: 100 kg

DRUGS (3)
  1. VIOXX [Suspect]
     Indication: GOUT
     Route: 048
     Dates: start: 20010601, end: 20020101
  2. INDOCIN [Concomitant]
     Indication: GOUT
     Route: 065
     Dates: start: 19880101
  3. COLCHICINE [Concomitant]
     Indication: GOUT
     Route: 065

REACTIONS (5)
  - ARTERIAL OCCLUSIVE DISEASE [None]
  - CARDIAC DISORDER [None]
  - CHEST PAIN [None]
  - DYSPNOEA [None]
  - HYPERTENSION [None]
